FAERS Safety Report 7598539-3 (Version None)
Quarter: 2011Q3

REPORT INFORMATION
  Report Type: 
  Country: None (occurrence: None)
  Receive Date: 20110708
  Receipt Date: 20110629
  Transmission Date: 20111222
  Serious: Yes (Hospitalization)
  Sender: FDA-Public Use
  Company Number: JP-ELI_LILLY_AND_COMPANY-JP201106008671

PATIENT
  Age: 59 Year
  Sex: Male

DRUGS (1)
  1. BYETTA [Suspect]
     Dosage: UNK
     Route: 058
     Dates: start: 20110609

REACTIONS (3)
  - RENAL IMPAIRMENT [None]
  - DECREASED APPETITE [None]
  - DEHYDRATION [None]
